FAERS Safety Report 6506327-1 (Version None)
Quarter: 2009Q4

REPORT INFORMATION
  Report Type: 
  Country: None (occurrence: None)
  Receive Date: 20091218
  Receipt Date: 20091210
  Transmission Date: 20100525
  Serious: Yes (Hospitalization, Other)
  Sender: FDA-Public Use
  Company Number: US-ABBOTT-09P-163-0613962-00

PATIENT
  Sex: Female
  Weight: 44.492 kg

DRUGS (6)
  1. HUMIRA [Suspect]
     Indication: CROHN'S DISEASE
     Route: 058
  2. POTASSIUM [Concomitant]
     Indication: DRUG USE FOR UNKNOWN INDICATION
  3. PREVACID [Concomitant]
     Indication: DRUG USE FOR UNKNOWN INDICATION
  4. UNKNOWN PAIN MEDICATIONS [Concomitant]
     Indication: DRUG USE FOR UNKNOWN INDICATION
  5. DIFLUCAN [Concomitant]
     Indication: FUNGAL SKIN INFECTION
  6. FLAGYL [Concomitant]
     Indication: PROPHYLAXIS

REACTIONS (2)
  - ASTHENIA [None]
  - CROHN'S DISEASE [None]
